FAERS Safety Report 7322600-1 (Version None)
Quarter: 2011Q1

REPORT INFORMATION
  Report Type: 
  Country: None (occurrence: None)
  Receive Date: 20110301
  Receipt Date: 20110223
  Transmission Date: 20110831
  Serious: Yes (Other)
  Sender: FDA-Public Use
  Company Number: US-PFIZER INC-2011039881

PATIENT
  Sex: Female
  Weight: 62.585 kg

DRUGS (3)
  1. CHANTIX [Suspect]
     Indication: SMOKING CESSATION THERAPY
     Dosage: 0.5 MG, 1X/DAY
     Route: 048
     Dates: start: 20100901, end: 20101001
  2. CHANTIX [Suspect]
     Dosage: UNK
     Route: 048
     Dates: start: 20101001, end: 20101101
  3. PROAIR HFA [Concomitant]
     Dosage: UNK

REACTIONS (1)
  - VISUAL IMPAIRMENT [None]
